FAERS Safety Report 13988670 (Version 1)
Quarter: 2017Q3

REPORT INFORMATION
  Report Type: Spontaneous
  Country: US (occurrence: US)
  Receive Date: 20170919
  Receipt Date: 20170919
  Transmission Date: 20171128
  Serious: No
  Sender: FDA-Public Use
  Company Number: US-AMNEAL PHARMACEUTICALS-2017AMN00488

PATIENT
  Sex: Female
  Weight: 56.25 kg

DRUGS (3)
  1. IRON [Concomitant]
     Active Substance: IRON
     Dosage: UNK
  2. LYRICA [Concomitant]
     Active Substance: PREGABALIN
     Indication: DIABETIC NEUROPATHY
     Dosage: 75 MG, 2X/DAY ONE BEFORE NOON AND ONE HOUR BEFORE BED
     Route: 048
     Dates: start: 2016
  3. GABAPENTIN. [Suspect]
     Active Substance: GABAPENTIN
     Dosage: 100 MG, UNK

REACTIONS (1)
  - Drug hypersensitivity [Unknown]
